FAERS Safety Report 5614155-4 (Version None)
Quarter: 2008Q1

REPORT INFORMATION
  Report Type: 
  Country: None (occurrence: None)
  Receive Date: 20080205
  Receipt Date: 20080130
  Transmission Date: 20080703
  Serious: Yes (Disabling)
  Sender: FDA-Public Use
  Company Number: A0706370A

PATIENT
  Age: 40 Year
  Sex: Female

DRUGS (4)
  1. BUPROPION HYDROCHLORIDE [Suspect]
     Indication: DEPRESSION
     Dosage: 150MG TWICE PER DAY
     Route: 048
     Dates: start: 20080101, end: 20080128
  2. URISTAT [Suspect]
  3. SYNTHROID [Concomitant]
  4. MOTRIN [Concomitant]

REACTIONS (7)
  - ACTIVITIES OF DAILY LIVING IMPAIRED [None]
  - BLADDER SPASM [None]
  - DYSURIA [None]
  - MICTURITION URGENCY [None]
  - NAUSEA [None]
  - POLLAKIURIA [None]
  - SLEEP DISORDER [None]
